FAERS Safety Report 25117988 (Version 2)
Quarter: 2025Q1

REPORT INFORMATION
  Report Type: Spontaneous
  Country: SA (occurrence: SA)
  Receive Date: 20250325
  Receipt Date: 20250327
  Transmission Date: 20250409
  Serious: Yes (Hospitalization, Other)
  Sender: PFIZER
  Company Number: SA-MLMSERVICE-20250317-PI446772-00301-1

PATIENT
  Age: 15 Year
  Sex: Male

DRUGS (5)
  1. SOMATROPIN [Suspect]
     Active Substance: SOMATROPIN
     Indication: Growth hormone deficiency
     Dosage: UNK, DAILY (HE HAD BEEN TAKING DAILY GROWTH HORMONE)
  2. CEFIXIME [Concomitant]
     Active Substance: CEFIXIME
     Indication: Vomiting
  3. CEFIXIME [Concomitant]
     Active Substance: CEFIXIME
     Indication: Diarrhoea
  4. METRONIDAZOLE [Concomitant]
     Active Substance: METRONIDAZOLE
     Indication: Vomiting
  5. METRONIDAZOLE [Concomitant]
     Active Substance: METRONIDAZOLE
     Indication: Diarrhoea

REACTIONS (1)
  - Acute kidney injury [Recovered/Resolved]
